FAERS Safety Report 21652294 (Version 1)
Quarter: 2022Q4

REPORT INFORMATION
  Report Type: Spontaneous
  Country: US (occurrence: None)
  Receive Date: 20221125
  Receipt Date: 20221125
  Transmission Date: 20230113
  Serious: No
  Sender: FDA-Public Use
  Company Number: None

PATIENT
  Age: 63 Year
  Sex: Female

DRUGS (10)
  1. NUCALA [Suspect]
     Active Substance: MEPOLIZUMAB
     Indication: Asthma
     Dosage: OTHER FREQUENCY : EVERY 28 DAYS;?
     Route: 058
     Dates: start: 20221007, end: 20221014
  2. Advair Discus 500/50 [Concomitant]
  3. Zetonna 37mcg Nasal [Concomitant]
  4. Levothyroxine 0.088mg [Concomitant]
  5. Cetifizine 10mg [Concomitant]
  6. ROSUVASTATIN [Concomitant]
     Active Substance: ROSUVASTATIN
  7. BLACK COHOSH [Concomitant]
     Active Substance: BLACK COHOSH
  8. Multiviamin [Concomitant]
  9. Vitamin C 500mg [Concomitant]
  10. BIOTIN [Concomitant]
     Active Substance: BIOTIN

REACTIONS (2)
  - Rash [None]
  - Somnolence [None]

NARRATIVE: CASE EVENT DATE: 20221010
